FAERS Safety Report 19418550 (Version 2)
Quarter: 2021Q2

REPORT INFORMATION
  Report Type: Spontaneous
  Country: US (occurrence: US)
  Receive Date: 20210615
  Receipt Date: 20210615
  Transmission Date: 20210717
  Serious: No
  Sender: FDA-Public Use
  Company Number: US-GALDERMA-US2021012307

PATIENT

DRUGS (1)
  1. DIFFERIN GEL [Suspect]
     Active Substance: ADAPALENE
     Indication: ACNE
     Dosage: 0.1%
     Route: 061

REACTIONS (8)
  - Erythema [Unknown]
  - Skin irritation [Unknown]
  - Skin exfoliation [Unknown]
  - Drug ineffective [Unknown]
  - Intentional underdose [Recovered/Resolved]
  - Dry skin [Unknown]
  - Pruritus [Unknown]
  - Intentional product misuse [Recovered/Resolved]
